FAERS Safety Report 8940464 (Version 2)
Quarter: 2012Q4

REPORT INFORMATION
  Report Type: 
  Country: JP (occurrence: JP)
  Receive Date: 20121130
  Receipt Date: 20121211
  Transmission Date: 20130627
  Serious: Yes (Other)
  Sender: FDA-Public Use
  Company Number: JP-PFIZER INC-2012286048

PATIENT
  Age: 82 Year
  Sex: Male

DRUGS (1)
  1. XALATAN [Suspect]
     Indication: GLAUCOMA
     Dosage: 1 Gtt, UNK
     Route: 047
     Dates: start: 20120321, end: 20121002

REACTIONS (2)
  - Keratitis herpetic [Recovered/Resolved]
  - Punctate keratitis [Recovered/Resolved]
